FAERS Safety Report 19088090 (Version 3)
Quarter: 2021Q2

REPORT INFORMATION
  Report Type: Spontaneous
  Country: AU (occurrence: AU)
  Receive Date: 20210402
  Receipt Date: 20210602
  Transmission Date: 20210717
  Serious: Yes (Hospitalization, Other)
  Sender: FDA-Public Use
  Company Number: AU-MYLANLABS-2021M1019153

PATIENT
  Sex: Male

DRUGS (2)
  1. CLOZARIL [Suspect]
     Active Substance: CLOZAPINE
     Indication: PSYCHOTIC DISORDER
     Dosage: 75 MILLIGRAM
     Dates: start: 20210225, end: 20210322
  2. CLOZARIL [Suspect]
     Active Substance: CLOZAPINE
     Indication: SCHIZOPHRENIA
     Dosage: 175 MILLIGRAM
     Route: 048
     Dates: start: 20210304, end: 20210322

REACTIONS (5)
  - Troponin increased [Recovered/Resolved]
  - C-reactive protein increased [Unknown]
  - Myocarditis [Recovered/Resolved]
  - Blood test abnormal [Unknown]
  - Urinary tract infection [Unknown]
